FAERS Safety Report 24652809 (Version 1)
Quarter: 2024Q4

REPORT INFORMATION
  Report Type: Spontaneous
  Country: US (occurrence: US)
  Receive Date: 20241122
  Receipt Date: 20241122
  Transmission Date: 20250115
  Serious: Yes (Other)
  Sender: RANBAXY
  Company Number: US-SUN PHARMACEUTICAL INDUSTRIES LTD-2024R1-480534

PATIENT
  Age: 4 Month
  Sex: Male

DRUGS (2)
  1. LATANOPROST [Suspect]
     Active Substance: LATANOPROST
     Indication: Juvenile xanthogranuloma
     Dosage: 0.005 % NIGHTLY
     Route: 065
  2. APRACLONIDINE [Suspect]
     Active Substance: APRACLONIDINE HYDROCHLORIDE
     Indication: Juvenile xanthogranuloma
     Dosage: 0.5 % TWICE DAILY OD
     Route: 065

REACTIONS (1)
  - Disease progression [Unknown]
